FAERS Safety Report 6732301-6 (Version None)
Quarter: 2010Q2

REPORT INFORMATION
  Report Type: 
  Country: None (occurrence: None)
  Receive Date: 20100519
  Receipt Date: 20100510
  Transmission Date: 20101027
  Serious: Yes (Hospitalization)
  Sender: FDA-Public Use
  Company Number: US-ALEXION-A201000463

PATIENT
  Sex: Female

DRUGS (15)
  1. SOLIRIS [Suspect]
     Indication: PAROXYSMAL NOCTURNAL HAEMOGLOBINURIA
     Dosage: 600 MG, QW X 4 WEEKS
     Route: 042
     Dates: start: 20080516, end: 20080613
  2. SOLIRIS [Suspect]
     Dosage: 900 MG, Q2W
     Route: 042
     Dates: start: 20080620, end: 20090101
  3. SOLIRIS [Suspect]
     Dosage: 900 MG, Q12 DAYS
     Route: 042
     Dates: start: 20090101, end: 20090101
  4. SOLIRIS [Suspect]
     Dosage: 900 MG, UNK
     Route: 042
  5. COUMADIN [Concomitant]
     Dosage: 5 MG, QD
     Route: 048
  6. BACTRIM [Concomitant]
     Dosage: 3 X WEEK
     Route: 048
  7. PENICILLIN                         /00000901/ [Concomitant]
     Dosage: 500 MG, QD
     Route: 048
  8. URSODIOL [Concomitant]
     Dosage: 300 MG, TID
     Route: 048
  9. ZOLOFT [Concomitant]
     Dosage: 150 MG, QD
     Route: 048
  10. CYTOVENE                           /00784201/ [Concomitant]
     Dosage: 500 MG, TID
     Route: 048
  11. MAGNESIUM [Concomitant]
     Dosage: 100 MG, TID
     Route: 048
  12. HYDROCORTISONE [Concomitant]
     Dosage: 15 MG, QD
     Route: 048
  13. PROCRIT                            /00909301/ [Concomitant]
     Dosage: 10000 IU, 1 X WEEK
     Route: 058
  14. BENADRYL [Concomitant]
     Indication: PREMEDICATION
     Dosage: 50 MG, UNK
     Route: 042
  15. TYLENOL (CAPLET) [Concomitant]
     Indication: PREMEDICATION
     Dosage: 650 MG, UNK

REACTIONS (4)
  - DIARRHOEA [None]
  - NAUSEA [None]
  - PYREXIA [None]
  - VOMITING [None]
